FAERS Safety Report 8913703 (Version 1)
Quarter: 2012Q4

REPORT INFORMATION
  Report Type: 
  Country: SE (occurrence: SE)
  Receive Date: 20121119
  Receipt Date: 20121119
  Transmission Date: 20130627
  Serious: No
  Sender: FDA-Public Use
  Company Number: SE-JNJFOC-20121103224

PATIENT
  Age: 84 Year
  Sex: Male

DRUGS (5)
  1. DUROGESIC [Suspect]
     Indication: MUSCULOSKELETAL PAIN
     Dosage: half of 12.5 ug/hr patch to get 6.0ug/hr
     Route: 062
  2. METOPROLOL [Concomitant]
     Indication: PRODUCT USED FOR UNKNOWN INDICATION
     Route: 065
  3. RAMIPRIL [Concomitant]
     Indication: PRODUCT USED FOR UNKNOWN INDICATION
     Route: 065
  4. OMEPRAZOLE [Concomitant]
     Indication: PRODUCT USED FOR UNKNOWN INDICATION
     Route: 065
  5. BETAPRED [Concomitant]
     Indication: PRODUCT USED FOR UNKNOWN INDICATION
     Route: 065

REACTIONS (1)
  - Wrong technique in drug usage process [Unknown]
